FAERS Safety Report 11468002 (Version 2)
Quarter: 2016Q1

REPORT INFORMATION
  Report Type: Spontaneous
  Country: US (occurrence: US)
  Receive Date: 20150908
  Receipt Date: 20160308
  Transmission Date: 20160525
  Serious: No
  Sender: FDA-Public Use
  Company Number: US-PFIZER INC-2015286485

PATIENT
  Age: 78 Year
  Sex: Female
  Weight: 73 kg

DRUGS (22)
  1. VOLTAREN [Concomitant]
     Active Substance: DICLOFENAC SODIUM
     Dosage: 5 G, 2X/DAY (1%)
     Route: 061
     Dates: start: 20150715
  2. PANTOPRAZOLE [Concomitant]
     Active Substance: PANTOPRAZOLE SODIUM
     Dosage: 40 MG, DAILY
     Route: 048
     Dates: start: 20140318
  3. DRISDOL [Concomitant]
     Active Substance: ERGOCALCIFEROL
     Dosage: 50000 IU, (EVERY OTHER WEEK)
     Route: 048
     Dates: start: 20151112
  4. GAS-X [Concomitant]
     Active Substance: DIMETHICONE
     Dosage: 80 MG, AS NEEDED
     Route: 048
     Dates: start: 20140318
  5. BENICAR HCT [Concomitant]
     Active Substance: HYDROCHLOROTHIAZIDE\OLMESARTAN MEDOXOMIL
     Dosage: 1 DF, 1X/DAY (EVERY MORNING) (HYDROCHLOROTHIAZIDE 25MG, OLMESARTAN MEDOXOMIL 40MG)
     Route: 048
     Dates: start: 20150528
  6. MECLIZINE [Concomitant]
     Active Substance: MECLIZINE HYDROCHLORIDE
     Dosage: 25 MG, AS NEEDED (3 TIME A DAY AS NEEDED)
     Dates: start: 20150728
  7. METOPROLOL SUCCINATE. [Concomitant]
     Active Substance: METOPROLOL SUCCINATE
     Dosage: 50 MG, 2X/DAY
     Route: 048
     Dates: start: 20150126
  8. VITAMIN D2 [Concomitant]
     Active Substance: ERGOCALCIFEROL
     Dosage: 50000 IU, (EVERY OTHER WEEK)
     Route: 048
     Dates: start: 20141021
  9. VITAMIN D2 [Concomitant]
     Active Substance: ERGOCALCIFEROL
     Dosage: 50000 IU, WEEKLY
     Route: 048
     Dates: start: 20150507
  10. BENICAR HCT [Concomitant]
     Active Substance: HYDROCHLOROTHIAZIDE\OLMESARTAN MEDOXOMIL
     Dosage: 1 DF, DAILY (HYDROCHLOROTHIAZIDE 25MG, OLMESARTAN MEDOXOMIL 40MG)
     Route: 048
     Dates: start: 20150507
  11. XARELTO [Concomitant]
     Active Substance: RIVAROXABAN
     Dosage: 20 MG, 1X/DAY (AT BEDTIME)
     Route: 048
     Dates: start: 20150824
  12. LYRICA [Suspect]
     Active Substance: PREGABALIN
     Indication: SPONDYLITIS
     Dosage: 150 MG, 1X/DAY
  13. LIDODERM [Concomitant]
     Active Substance: LIDOCAINE
     Dosage: UNK, 2X/DAY (5% 1 TOOLCAL EVERY TWELVE HOURS)
     Route: 061
     Dates: start: 20141119
  14. ASPIRIN. [Concomitant]
     Active Substance: ASPIRIN
     Dosage: 81 MG, DAILY
     Route: 048
     Dates: start: 20140318
  15. HIPREX [Concomitant]
     Active Substance: METHENAMINE HIPPURATE
     Dosage: 1 G, 2X/DAY
     Route: 048
     Dates: start: 20140318
  16. TYLENOL [Concomitant]
     Active Substance: ACETAMINOPHEN
     Dosage: 500 MG, AS NEEDED (THREE TIMES A DAY)
     Route: 048
     Dates: start: 20140318
  17. PANTOPRAZOLE [Concomitant]
     Active Substance: PANTOPRAZOLE SODIUM
     Dosage: 40 MG, DAILY
     Route: 048
     Dates: start: 20150507
  18. PROLIA [Concomitant]
     Active Substance: DENOSUMAB
     Dosage: 1 DF, UNK (60 MG/ML SOLUTION EVERY SIX MONTHS)
     Route: 058
     Dates: start: 20150608
  19. DRISDOL [Concomitant]
     Active Substance: ERGOCALCIFEROL
     Dosage: 50000 IU, (EVERY OTHER WEEK)
     Route: 048
     Dates: start: 20150511
  20. NITROSTAT [Concomitant]
     Active Substance: NITROGLYCERIN
     Dosage: 0.4 MG, UNK (1Q5 MIN X3 TOTAL)
     Route: 060
     Dates: start: 20140403
  21. XANAX [Concomitant]
     Active Substance: ALPRAZOLAM
     Dosage: 0.5 MG, AS NEEDED
     Route: 048
     Dates: start: 20140318
  22. ATORVASTATIN [Concomitant]
     Active Substance: ATORVASTATIN
     Dosage: 10 MG, 1X/DAY
     Route: 048
     Dates: start: 20150824

REACTIONS (2)
  - Product use issue [Unknown]
  - Pain [Unknown]
